FAERS Safety Report 8486419-0 (Version None)
Quarter: 2012Q3

REPORT INFORMATION
  Report Type: 
  Country: None (occurrence: None)
  Receive Date: 20120703
  Receipt Date: 20120627
  Transmission Date: 20120928
  Serious: Yes (Death, Other)
  Sender: FDA-Public Use
  Company Number: CHPA2012US013564

PATIENT
  Sex: Male

DRUGS (1)
  1. EXCEDRIN EXTRA STRENGTH TABLETS [Suspect]
     Dosage: 2 DF, 2-3 TIMES A DAY
     Route: 048
     Dates: end: 20100401

REACTIONS (6)
  - PAIN [None]
  - LUNG NEOPLASM MALIGNANT [None]
  - METASTASES TO LIVER [None]
  - OFF LABEL USE [None]
  - INCORRECT DRUG ADMINISTRATION DURATION [None]
  - ABDOMINAL DISCOMFORT [None]
